FAERS Safety Report 9264567 (Version 3)
Quarter: 2013Q2

REPORT INFORMATION
  Report Type: Spontaneous
  Country: US (occurrence: US)
  Receive Date: 20130501
  Receipt Date: 20130617
  Transmission Date: 20140414
  Serious: Yes (Hospitalization)
  Sender: FDA-Public Use
  Company Number: US-BIOGENIDEC-2013BI037244

PATIENT
  Age: 45 Year
  Sex: Female

DRUGS (1)
  1. AVONEX [Suspect]
     Indication: MULTIPLE SCLEROSIS
     Route: 030
     Dates: start: 20130211

REACTIONS (5)
  - Abscess oral [Recovered/Resolved]
  - Eye abscess [Not Recovered/Not Resolved]
  - Visual impairment [Recovered/Resolved]
  - Cellulitis [Recovered/Resolved]
  - Muscle spasms [Not Recovered/Not Resolved]
